FAERS Safety Report 22185963 (Version 1)
Quarter: 2023Q2

REPORT INFORMATION
  Report Type: Spontaneous
  Country: US (occurrence: None)
  Receive Date: 20230406
  Receipt Date: 20230406
  Transmission Date: 20230722
  Serious: Yes (Hospitalization, Other)
  Sender: FDA-Public Use
  Company Number: None

PATIENT
  Age: 78 Year
  Sex: Male
  Weight: 87.3 kg

DRUGS (7)
  1. BOTOX [Suspect]
     Active Substance: ONABOTULINUMTOXINA
     Indication: Salivary hypersecretion
     Dosage: FREQUENCY : AS NEEDED;?OTHER ROUTE : INTRA GLANDULAR (PAROTID + SUBMANDIBULAR;?
     Route: 050
     Dates: start: 20230327, end: 20230327
  2. ATORVASTATIN [Concomitant]
     Active Substance: ATORVASTATIN
  3. carbidopa-levodopa ER 25-100 mg [Concomitant]
  4. ENTACAPONE [Concomitant]
     Active Substance: ENTACAPONE
  5. TAMSULOSIN [Concomitant]
     Active Substance: TAMSULOSIN
  6. rivastigmine 1.5 mg [Concomitant]
  7. VITAMIN D3 [Concomitant]
     Active Substance: CHOLECALCIFEROL

REACTIONS (3)
  - Swollen tongue [None]
  - Dysphagia [None]
  - Dysarthria [None]

NARRATIVE: CASE EVENT DATE: 20230327
